FAERS Safety Report 6283871-6 (Version None)
Quarter: 2009Q3

REPORT INFORMATION
  Report Type: 
  Country: None (occurrence: None)
  Receive Date: 20090723
  Receipt Date: 20090723
  Transmission Date: 20100115
  Serious: Yes (Hospitalization, Other)
  Sender: FDA-Public Use
  Company Number: None

PATIENT
  Sex: Female
  Weight: 61.2356 kg

DRUGS (1)
  1. DEXAMETHASONE 0.5MG TAB [Suspect]
     Indication: BLOOD TESTOSTERONE INCREASED
     Dosage: .5MG EVERY NIGHT PO
     Route: 048
     Dates: start: 20040901, end: 20090706

REACTIONS (13)
  - ABDOMINAL PAIN UPPER [None]
  - ACNE [None]
  - ALCOHOL USE [None]
  - ANGER [None]
  - ANXIETY [None]
  - HYPOPHAGIA [None]
  - INSOMNIA [None]
  - IRRITABILITY [None]
  - LETHARGY [None]
  - LOSS OF CONSCIOUSNESS [None]
  - MOOD SWINGS [None]
  - NERVOUSNESS [None]
  - WEIGHT INCREASED [None]
